FAERS Safety Report 24709090 (Version 1)
Quarter: 2024Q4

REPORT INFORMATION
  Report Type: Spontaneous
  Country: US (occurrence: US)
  Receive Date: 20241208
  Receipt Date: 20241208
  Transmission Date: 20250114
  Serious: No
  Sender: ALEXION PHARMACEUTICALS
  Company Number: US-SANOFI-02259693

PATIENT
  Age: 6 Month

DRUGS (5)
  1. BEYFORTUS [Suspect]
     Active Substance: NIRSEVIMAB-ALIP
     Indication: Antiviral prophylaxis
     Dosage: 0.5 ML, 1X
  2. BEYFORTUS [Suspect]
     Active Substance: NIRSEVIMAB-ALIP
     Dosage: 0.5 ML, 1X
  3. PEDIARIX [Concomitant]
     Active Substance: DIPHTHERIA AND TETANUS TOXOIDS AND ACELLULAR PERTUSSIS AND HEPATITIS B AND INACTIVATED POLIOVIRUS VA
     Indication: Immunisation
     Dosage: UNK
  4. PNEUMOCOCCAL VACCINE POLYVALENT NOS [Concomitant]
     Active Substance: PNEUMOCOCCAL VACCINE, POLYVALENT
     Indication: Immunisation
     Dosage: UNK
  5. HAEMOPHILUS INFLUENZAE TYPE B [Concomitant]
     Active Substance: HAEMOPHILUS INFLUENZAE TYPE B
     Indication: Immunisation
     Dosage: UNK

REACTIONS (1)
  - Extra dose administered [Unknown]
